FAERS Safety Report 4961461-2 (Version None)
Quarter: 2006Q1

REPORT INFORMATION
  Report Type: 
  Country: None (occurrence: None)
  Receive Date: 20060329
  Receipt Date: 20060313
  Transmission Date: 20060701
  Serious: Yes (Other)
  Sender: FDA-Public Use
  Company Number: 2006JP000517

PATIENT
  Age: 2 Year
  Sex: Male

DRUGS (1)
  1. PROGRAF [Suspect]
     Indication: BONE MARROW TRANSPLANT
     Dates: start: 20050101, end: 20050101

REACTIONS (11)
  - ACUTE RESPIRATORY DISTRESS SYNDROME [None]
  - DIARRHOEA [None]
  - GRAFT VERSUS HOST DISEASE [None]
  - HYPERBILIRUBINAEMIA [None]
  - PLASMINOGEN ACTIVATOR INHIBITOR INCREASED [None]
  - PLATELET COUNT DECREASED [None]
  - RED BLOOD CELL MORPHOLOGY ABNORMAL [None]
  - SHOCK HAEMORRHAGIC [None]
  - STAPHYLOCOCCAL SEPSIS [None]
  - THROMBOTIC MICROANGIOPATHY [None]
  - UPPER GASTROINTESTINAL HAEMORRHAGE [None]
